FAERS Safety Report 18204524 (Version 1)
Quarter: 2020Q3

REPORT INFORMATION
  Report Type: Spontaneous
  Country: FR (occurrence: FR)
  Receive Date: 20200827
  Receipt Date: 20200827
  Transmission Date: 20201103
  Serious: Yes (Hospitalization)
  Sender: FDA-Public Use
  Company Number: FR-MYLANLABS-2020M1073441

PATIENT
  Age: 63 Year
  Sex: Male
  Weight: 102 kg

DRUGS (2)
  1. IDARUBICIN [Suspect]
     Active Substance: IDARUBICIN
     Indication: MYELODYSPLASTIC SYNDROME
     Dosage: 12 MILLIGRAM/SQ. METER, QD
     Route: 042
     Dates: start: 20200320, end: 20200323
  2. CYTARABINE. [Suspect]
     Active Substance: CYTARABINE
     Indication: MYELODYSPLASTIC SYNDROME
     Dosage: UNK
     Route: 042
     Dates: start: 20200320, end: 20200326

REACTIONS (1)
  - Venoocclusive liver disease [Recovered/Resolved]

NARRATIVE: CASE EVENT DATE: 20200402
